FAERS Safety Report 5841062-4 (Version None)
Quarter: 2008Q3

REPORT INFORMATION
  Report Type: 
  Country: None (occurrence: None)
  Receive Date: 20080811
  Receipt Date: 20080806
  Transmission Date: 20090109
  Serious: Yes (Congenital Anomaly, Other)
  Sender: FDA-Public Use
  Company Number: FR-ABBOTT-08P-056-0469150-00

PATIENT
  Sex: Female

DRUGS (6)
  1. KALETRA [Suspect]
     Indication: DRUG EXPOSURE DURING PREGNANCY
     Route: 064
  2. RITONAVIR SOFT GELATIN CAPSULES [Suspect]
     Indication: PATERNAL DRUGS AFFECTING FOETUS
     Route: 050
  3. LAMIVUDINE + ZIDOVUDINE [Suspect]
     Indication: DRUG EXPOSURE DURING PREGNANCY
     Route: 064
  4. ZIDOVUDINE [Suspect]
     Indication: PATERNAL DRUGS AFFECTING FOETUS
     Route: 050
  5. FOSAMPRENAVIR [Suspect]
     Indication: PATERNAL DRUGS AFFECTING FOETUS
     Route: 050
  6. DIDANOSINE [Suspect]
     Indication: PATERNAL DRUGS AFFECTING FOETUS
     Route: 050

REACTIONS (8)
  - ANAEMIA [None]
  - CYANOSIS [None]
  - DRUG EXPOSURE DURING PREGNANCY [None]
  - MULTI-ORGAN DISORDER [None]
  - PALLOR [None]
  - PATERNAL DRUGS AFFECTING FOETUS [None]
  - SKIN DISORDER [None]
  - SKULL MALFORMATION [None]
